FAERS Safety Report 8446241-8 (Version None)
Quarter: 2012Q2

REPORT INFORMATION
  Report Type: 
  Country: None (occurrence: None)
  Receive Date: 20120618
  Receipt Date: 20120612
  Transmission Date: 20120825
  Serious: Yes (Other)
  Sender: FDA-Public Use
  Company Number: VE-ABBOTT-12P-178-0945857-00

PATIENT
  Sex: Female

DRUGS (1)
  1. HUMIRA [Suspect]
     Indication: RHEUMATOID ARTHRITIS
     Route: 058
     Dates: start: 20100630, end: 20111001

REACTIONS (5)
  - BRONCHIAL DISORDER [None]
  - NASOPHARYNGITIS [None]
  - HAEMORRHOIDS [None]
  - TACHYCARDIA [None]
  - PYREXIA [None]
